FAERS Safety Report 5701126-2 (Version None)
Quarter: 2008Q2

REPORT INFORMATION
  Report Type: 
  Country: None (occurrence: None)
  Receive Date: 20080410
  Receipt Date: 20080328
  Transmission Date: 20081010
  Serious: No
  Sender: FDA-Public Use
  Company Number: US-AMGEN-QUU270369

PATIENT
  Sex: Female
  Weight: 68.1 kg

DRUGS (9)
  1. ENBREL [Suspect]
     Indication: RHEUMATOID ARTHRITIS
     Route: 058
     Dates: start: 20071105
  2. METHOTREXATE [Concomitant]
     Dates: start: 20070221
  3. METHYLPHENIDATE HCL [Concomitant]
     Dates: start: 20040727
  4. RITALIN [Concomitant]
     Dates: start: 20040701
  5. PROVENTIL [Concomitant]
     Dates: start: 20080229
  6. EPINEPHRINE [Concomitant]
     Dates: start: 20051101
  7. FEXOFENADINE [Concomitant]
     Dates: start: 20070122
  8. FOLIC ACID [Concomitant]
     Dates: start: 20070221
  9. PREDNISONE [Concomitant]
     Dates: start: 20070221

REACTIONS (2)
  - FATIGUE [None]
  - INJECTION SITE ERYTHEMA [None]
